FAERS Safety Report 13464355 (Version 1)
Quarter: 2017Q2

REPORT INFORMATION
  Report Type: Spontaneous
  Country: US (occurrence: US)
  Receive Date: 20170420
  Receipt Date: 20170420
  Transmission Date: 20170830
  Serious: Yes (Other)
  Sender: FDA-Public Use
  Company Number: US-ROCHE-432365

PATIENT
  Age: 22 Year
  Sex: Male
  Weight: 97.5 kg

DRUGS (1)
  1. ACCUTANE [Suspect]
     Active Substance: ISOTRETINOIN
     Indication: ACNE
     Route: 048
     Dates: start: 198311, end: 198404

REACTIONS (4)
  - Irritable bowel syndrome [Unknown]
  - Inflammatory bowel disease [Unknown]
  - Colitis ulcerative [Unknown]
  - Colitis [Unknown]

NARRATIVE: CASE EVENT DATE: 198810
